FAERS Safety Report 4546728-4 (Version None)
Quarter: 2005Q1

REPORT INFORMATION
  Report Type: 
  Country: None (occurrence: None)
  Receive Date: 20050105
  Receipt Date: 20041110
  Transmission Date: 20050727
  Serious: Yes (Death, Hospitalization)
  Sender: FDA-Public Use
  Company Number: STA-AE-04-MTX-536

PATIENT
  Age: 55 Year
  Sex: Female

DRUGS (11)
  1. METHOTREXATE [Suspect]
     Indication: PSORIATIC ARTHROPATHY
     Dates: start: 20001001
  2. ENBREL [Suspect]
     Indication: PSORIATIC ARTHROPATHY
     Dosage: 25 MG 2 X PER 1 WK, SC
     Route: 058
     Dates: start: 20040720, end: 20041011
  3. FOLIC ACID [Concomitant]
  4. CELEBREX [Concomitant]
  5. .......... [Concomitant]
  6. FOLIC ACID [Concomitant]
  7. CELEBREX [Concomitant]
  8. DOTHIEPIN HYDROCHLORIDE [Concomitant]
  9. LANSOPRAZOLE [Concomitant]
  10. LACTULOSE [Concomitant]
  11. SULFASALAZINE [Concomitant]

REACTIONS (1)
  - OVARIAN CANCER [None]
